FAERS Safety Report 9503306 (Version 1)
Quarter: 2013Q3

REPORT INFORMATION
  Report Type: Spontaneous
  Country: US (occurrence: US)
  Receive Date: 20130906
  Receipt Date: 20130906
  Transmission Date: 20140515
  Serious: No
  Sender: FDA-Public Use
  Company Number: US-BAUSCH-BL-2013-001328

PATIENT
  Age: 46 Year
  Sex: Male
  Weight: 83.99 kg

DRUGS (5)
  1. TROPICAMIDE [Suspect]
     Indication: PUPIL DILATION PROCEDURE
     Dosage: 1 DROP IN EACH EYE; ONCE; OPHTHALMIC
     Route: 047
     Dates: start: 20130215
  2. PHENYLEPHRINE HYDROCHLORIDE [Suspect]
     Indication: PUPIL DILATION PROCEDURE
     Dosage: 1 DROP IN EACH EYE; ONCE; OPHTHALMIC
     Route: 047
     Dates: start: 20130215, end: 20130215
  3. LISINOPRIL [Concomitant]
     Indication: HYPERTENSION
  4. AMLODIPINE [Concomitant]
     Indication: HYPERTENSION
  5. SITOSTEROL [Concomitant]

REACTIONS (1)
  - Drug effect prolonged [Recovered/Resolved]
